FAERS Safety Report 8780420 (Version 1)
Quarter: 2012Q4

REPORT INFORMATION
  Report Type: Spontaneous
  Country: DE (occurrence: None)
  Receive Date: 20120905
  Receipt Date: 20120905
  Transmission Date: 20130627
  Serious: Yes (Disabling, Other)
  Sender: FDA-Public Use
  Company Number: None

PATIENT
  Age: 27 Year
  Sex: Male
  Weight: 86 kg

DRUGS (1)
  1. PROPECIA [Suspect]
     Dosage: 047
     Dates: start: 2005, end: 2009

REACTIONS (8)
  - Libido decreased [None]
  - Disturbance in sexual arousal [None]
  - Gynaecomastia [None]
  - Depression [None]
  - Personality change [None]
  - Psychiatric symptom [None]
  - Hyperhidrosis [None]
  - Social problem [None]
